FAERS Safety Report 10779879 (Version 1)
Quarter: 2015Q1

REPORT INFORMATION
  Report Type: Spontaneous
  Country: PE (occurrence: PE)
  Receive Date: 20150210
  Receipt Date: 20150210
  Transmission Date: 20150721
  Serious: Yes (Other)
  Sender: FDA-Public Use
  Company Number: PE-PFIZER INC-2015051747

PATIENT
  Age: 74 Year
  Sex: Female

DRUGS (2)
  1. XANAX XR [Concomitant]
     Active Substance: ALPRAZOLAM
     Dosage: UNK
  2. PRISTIQ EXTENDED RELEASE [Suspect]
     Active Substance: DESVENLAFAXINE SUCCINATE
     Dosage: UNK
     Dates: end: 2015

REACTIONS (3)
  - Agitation [Not Recovered/Not Resolved]
  - Mutism [Not Recovered/Not Resolved]
  - Infarction [Unknown]

NARRATIVE: CASE EVENT DATE: 20150129
